FAERS Safety Report 4642548-0 (Version None)
Quarter: 2005Q2

REPORT INFORMATION
  Report Type: 
  Country: None (occurrence: None)
  Receive Date: 20050420
  Receipt Date: 20050405
  Transmission Date: 20051028
  Serious: Yes (Other)
  Sender: FDA-Public Use
  Company Number: GBS050316848

PATIENT
  Age: 74 Year
  Sex: Female

DRUGS (11)
  1. PROZAC [Suspect]
     Indication: DEPRESSION
     Dosage: 20 MG DAY
     Dates: start: 20050211, end: 20050303
  2. VENLAFAXINE [Concomitant]
  3. CO-CODAMOL [Concomitant]
  4. MAXOLON [Concomitant]
  5. VALSARTAN [Concomitant]
  6. ATORVASTATIN CALCIUM [Concomitant]
  7. ASPIRIN [Concomitant]
  8. CO-AMILOZIDE [Concomitant]
  9. OMEPRAZOLE [Concomitant]
  10. RISEDRONATE SODIUM [Concomitant]
  11. CALCITRIOL [Concomitant]

REACTIONS (4)
  - ANOREXIA [None]
  - RHINORRHOEA [None]
  - SEROTONIN SYNDROME [None]
  - TREMOR [None]
